FAERS Safety Report 6100369-6 (Version None)
Quarter: 2009Q1

REPORT INFORMATION
  Report Type: 
  Country: None (occurrence: None)
  Receive Date: 20090227
  Receipt Date: 20090227
  Transmission Date: 20090719
  Serious: Yes (Hospitalization)
  Sender: FDA-Public Use
  Company Number: None

PATIENT
  Sex: Female
  Weight: 63 kg

DRUGS (5)
  1. TEMOZOLOMIDE [Suspect]
     Dosage: 500 MG
  2. BENADRYL [Concomitant]
  3. ONDANSETRON [Concomitant]
  4. PANTOPRAZOLE SODIUM [Concomitant]
  5. RANITIDINE [Concomitant]

REACTIONS (1)
  - CHOLECYSTITIS ACUTE [None]
